FAERS Safety Report 4818799-9 (Version None)
Quarter: 2005Q4

REPORT INFORMATION
  Report Type: 
  Country: None (occurrence: None)
  Receive Date: 20051101
  Receipt Date: 20051020
  Transmission Date: 20060501
  Serious: Yes (Hospitalization, Other)
  Sender: FDA-Public Use
  Company Number: 2005145754

PATIENT
  Age: 56 Year
  Sex: Female

DRUGS (10)
  1. VIBRAMYCIN [Suspect]
     Indication: ILL-DEFINED DISORDER
     Dosage: 100 MG (2 IN 1 D), ORAL
     Route: 048
     Dates: start: 20041227, end: 20050110
  2. PANITUMUMAB (PANITUMUMAB) [Suspect]
     Indication: COLORECTAL CANCER
     Dosage: (1 IN 2 WK), INTRAVENOUS
     Route: 042
     Dates: start: 20041213
  3. LANSOPRAZOLE [Concomitant]
  4. LEVOXYL [Concomitant]
  5. WARFARIN SODIUM [Concomitant]
  6. ACETAMINOPHEN [Concomitant]
  7. IBUPROFEN [Concomitant]
  8. IRON (IRON) [Concomitant]
  9. ARANESP [Concomitant]
  10. FLUTICASONE PROPIONATE [Concomitant]

REACTIONS (2)
  - DEHYDRATION [None]
  - NAUSEA [None]
